FAERS Safety Report 7584417-2 (Version None)
Quarter: 2011Q2

REPORT INFORMATION
  Report Type: 
  Country: None (occurrence: None)
  Receive Date: 20110630
  Receipt Date: 20110107
  Transmission Date: 20111010
  Serious: Yes (Hospitalization, Other)
  Sender: FDA-Public Use
  Company Number: US-BAYER-200937833NA

PATIENT
  Age: 62 Year
  Sex: Male
  Weight: 88.435 kg

DRUGS (33)
  1. TRASYLOL [Suspect]
     Indication: CORONARY ARTERY BYPASS
     Dosage: 25 ML PER HOUR, UNK
     Route: 042
     Dates: start: 20050506, end: 20050506
  2. TRASYLOL [Suspect]
     Indication: CARDIAC ABLATION
     Dosage: 1 ML, ONCE
     Route: 042
     Dates: start: 20050506, end: 20050506
  3. TRASYLOL [Suspect]
     Indication: PHLEBECTOMY
     Dosage: 199 ML, ONCE
     Route: 042
     Dates: start: 20050506, end: 20050506
  4. LISINOPRIL [Concomitant]
     Dosage: 20 MG, UNK
     Route: 048
  5. DIATRIZOATE SODIUM W/MEGLUMINE DIATRIZOATE [Suspect]
     Indication: CATHETERISATION CARDIAC
     Dosage: UNK
     Dates: start: 20050505
  6. NITROGLYCERIN [Concomitant]
     Dosage: 3 ML, UNK
     Route: 042
     Dates: start: 20050506, end: 20050506
  7. AMIODARONE HCL [Concomitant]
     Dosage: 17 ML, Q1HR
     Route: 042
     Dates: start: 20050506, end: 20050506
  8. PAVULON [Concomitant]
     Dosage: UNK
     Route: 042
     Dates: start: 20050506, end: 20050506
  9. CARDIZEM [Concomitant]
     Dosage: 10 MG, Q1HR
     Dates: start: 20050505, end: 20050505
  10. CARDIZEM [Concomitant]
     Dosage: 20 MG, Q1HR
     Dates: start: 20050505, end: 20050505
  11. VERSED [Concomitant]
     Dosage: UNK
  12. MILRINONE [Concomitant]
     Dosage: 0.5 MCG/ML, UNK
     Route: 042
     Dates: start: 20050506
  13. LISINOPRIL [Concomitant]
     Dosage: 10 MG, UNK
     Route: 048
  14. FENTANYL [Concomitant]
     Dosage: 20 MCG/ML, UNK
     Route: 042
     Dates: start: 20050506
  15. NORVASC [Concomitant]
     Dosage: 10 MG, UNK
     Route: 048
  16. LABETALOL HCL [Concomitant]
     Dosage: 20 MG, UNK
     Route: 042
     Dates: start: 20050505, end: 20050505
  17. HEPARIN [Concomitant]
     Dosage: 5000 U, UNK
     Route: 042
     Dates: start: 20050505
  18. HEPARIN [Concomitant]
     Dosage: 41000 U, UNK
     Route: 042
     Dates: start: 20050506, end: 20050506
  19. LOPRESSOR [Concomitant]
     Dosage: 50 MG, UNK
     Route: 048
     Dates: start: 20050505
  20. PAPAVERINE [Concomitant]
     Dosage: 30 MG, UNK
     Route: 042
     Dates: start: 20050506, end: 20050506
  21. PROTAMINE SULFATE [Concomitant]
     Dosage: 600 MG, UNK
     Route: 042
     Dates: start: 20050506, end: 20050506
  22. LIPITOR [Concomitant]
     Dosage: 10 MG, UNK
     Route: 048
  23. AVALIDE [Concomitant]
     Route: 048
  24. NITROGLYCERIN [Concomitant]
     Dosage: 40 MCG/ML, Q1MIN
     Route: 042
     Dates: start: 20050505, end: 20050505
  25. PROTAMINE SULFATE [Concomitant]
     Dosage: 100 MG, UNK
     Route: 042
     Dates: start: 20050506
  26. DOPAMINE HCL [Concomitant]
     Dosage: UNK
     Route: 042
     Dates: start: 20050506, end: 20050506
  27. ALBUMIN (HUMAN) [Concomitant]
     Dosage: 50 G, UNK
     Route: 042
     Dates: start: 20050506, end: 20050506
  28. ETOMIDATE [Concomitant]
     Dosage: 20 MG, UNK
     Route: 042
     Dates: start: 20050506
  29. VISIPAQUE [Suspect]
     Indication: CATHETERISATION CARDIAC
     Dosage: UNK
     Dates: start: 20050505
  30. ASPIRIN [Concomitant]
     Route: 048
  31. PLASMALYTE [GLUCOSE,POTASSIUM CHLORIDE] [Concomitant]
     Dosage: 2000 ML, UNK
     Route: 042
  32. LASIX [Concomitant]
     Dosage: 40 MG, UNK
     Route: 042
  33. BREVIBLOC [Concomitant]
     Dosage: 100 MG, UNK
     Route: 042
     Dates: start: 20050506, end: 20050506

REACTIONS (13)
  - RENAL IMPAIRMENT [None]
  - RENAL INJURY [None]
  - CEREBROVASCULAR ACCIDENT [None]
  - RENAL FAILURE [None]
  - UNEVALUABLE EVENT [None]
  - INJURY [None]
  - ANHEDONIA [None]
  - ANXIETY [None]
  - FEAR [None]
  - PAIN [None]
  - EMOTIONAL DISTRESS [None]
  - MULTI-ORGAN FAILURE [None]
  - STRESS [None]
